FAERS Safety Report 13935111 (Version 2)
Quarter: 2017Q3

REPORT INFORMATION
  Report Type: Report from Study
  Country: US (occurrence: US)
  Receive Date: 20170905
  Receipt Date: 20170912
  Transmission Date: 20171127
  Serious: Yes (Hospitalization, Other)
  Sender: FDA-Public Use
  Company Number: US-AMGEN-USASL2017132442

PATIENT
  Age: 64 Year
  Sex: Male

DRUGS (1)
  1. REPATHA [Suspect]
     Active Substance: EVOLOCUMAB
     Indication: PRODUCT USED FOR UNKNOWN INDICATION
     Dosage: UNK
     Route: 065

REACTIONS (7)
  - Sepsis [Unknown]
  - Muscular weakness [Unknown]
  - Chronic obstructive pulmonary disease [Unknown]
  - Myopathy [Unknown]
  - Pneumonia [Unknown]
  - Cardiac failure acute [Unknown]
  - Chronic inflammatory demyelinating polyradiculoneuropathy [Unknown]
